FAERS Safety Report 7640922-1 (Version None)
Quarter: 2011Q3

REPORT INFORMATION
  Report Type: 
  Country: None (occurrence: None)
  Receive Date: 20110722
  Receipt Date: 20110706
  Transmission Date: 20111222
  Serious: Yes (Life-Threatening, Hospitalization)
  Sender: FDA-Public Use
  Company Number: 2011MA008429

PATIENT
  Age: 2 Year
  Sex: Female
  Weight: 45 kg

DRUGS (6)
  1. HALOPERIDOL [Concomitant]
  2. LORAZEPAM [Suspect]
     Indication: CONVULSION
     Dosage: 4 MG,X2, IV
     Route: 042
  3. PENTOTHAL [Suspect]
     Indication: PREMEDICATION
     Dosage: 250 MG
  4. SUCCINYLCHOLINE CHLORIDE [Suspect]
     Indication: PREMEDICATION
     Dosage: 25 MG
  5. ATROPINE [Suspect]
     Indication: PREMEDICATION
     Dosage: 0.6 MG
  6. TRIHEXYPHENIDYL [Concomitant]

REACTIONS (7)
  - BLOOD POTASSIUM DECREASED [None]
  - HAEMOGLOBIN DECREASED [None]
  - CONVULSION [None]
  - HEART RATE INCREASED [None]
  - APNOEA [None]
  - SPEECH DISORDER [None]
  - CONFUSIONAL STATE [None]
